FAERS Safety Report 6719495-3 (Version None)
Quarter: 2010Q2

REPORT INFORMATION
  Report Type: 
  Country: None (occurrence: None)
  Receive Date: 20100510
  Receipt Date: 20100510
  Transmission Date: 20101027
  Serious: Yes (Hospitalization, Disabling, Other)
  Sender: FDA-Public Use
  Company Number: None

PATIENT
  Age: 34 Year
  Sex: Female
  Weight: 87.5442 kg

DRUGS (2)
  1. MIRENA [Suspect]
     Indication: CONTRACEPTION
     Dates: start: 20081001, end: 20100507
  2. MIRENA [Concomitant]

REACTIONS (8)
  - ALOPECIA [None]
  - DIARRHOEA [None]
  - DRY SKIN [None]
  - HEADACHE [None]
  - LOSS OF LIBIDO [None]
  - MIDDLE INSOMNIA [None]
  - NAUSEA [None]
  - VOMITING [None]
